FAERS Safety Report 14251012 (Version 2)
Quarter: 2018Q2

REPORT INFORMATION
  Report Type: Spontaneous
  Country: US (occurrence: US)
  Receive Date: 20171205
  Receipt Date: 20180612
  Transmission Date: 20180711
  Serious: No
  Sender: FDA-Public Use
  Company Number: US-PFIZER INC-2017516120

PATIENT
  Age: 52 Year
  Sex: Female

DRUGS (6)
  1. AROMASIN [Concomitant]
     Active Substance: EXEMESTANE
     Dosage: UNK
     Dates: start: 20141222
  2. ANASTRAZOLE [Concomitant]
     Active Substance: ANASTROZOLE
     Dosage: UNK
     Dates: start: 2002
  3. DOCETAXEL. [Suspect]
     Active Substance: DOCETAXEL
     Indication: BREAST CANCER
     Dosage: UNK UNK, CYCLIC EVERY 2 WEEKS
     Dates: start: 20140613, end: 20140814
  4. NEOSAR [Concomitant]
     Active Substance: CYCLOPHOSPHAMIDE
  5. AROMASIN [Concomitant]
     Active Substance: EXEMESTANE
     Dosage: UNK
     Dates: start: 201411, end: 201411
  6. TAXOTERE [Suspect]
     Active Substance: DOCETAXEL
     Indication: BREAST CANCER
     Dosage: UNK UNK, CYCLIC EVERY 2 WEEKS
     Dates: start: 20140613, end: 20140814

REACTIONS (5)
  - Hair texture abnormal [Not Recovered/Not Resolved]
  - Hair disorder [Not Recovered/Not Resolved]
  - Madarosis [Not Recovered/Not Resolved]
  - Alopecia [Not Recovered/Not Resolved]
  - Hair colour changes [Not Recovered/Not Resolved]
